FAERS Safety Report 5619817-0 (Version None)
Quarter: 2008Q1

REPORT INFORMATION
  Report Type: 
  Country: None (occurrence: None)
  Receive Date: 20080208
  Receipt Date: 20080130
  Transmission Date: 20080703
  Serious: Yes (Hospitalization)
  Sender: FDA-Public Use
  Company Number: PHNU2007DE03707

PATIENT
  Sex: Male

DRUGS (1)
  1. LEPONEX [Suspect]
     Indication: SCHIZOPHRENIA
     Dosage: 300 MG/DAY
     Route: 048

REACTIONS (6)
  - ANISOCYTOSIS [None]
  - EOSINOPHILIA [None]
  - HYPOCHROMASIA [None]
  - NEUTROPENIA [None]
  - POIKILOCYTOSIS [None]
  - POLYCHROMASIA [None]
